FAERS Safety Report 19814366 (Version 1)
Quarter: 2021Q3

REPORT INFORMATION
  Report Type: Spontaneous
  Country: US (occurrence: US)
  Receive Date: 20210910
  Receipt Date: 20210910
  Transmission Date: 20211014
  Serious: No
  Sender: FDA-Public Use
  Company Number: US-GLAXOSMITHKLINE-US2021191702

PATIENT
  Age: 58 Year
  Sex: Female

DRUGS (1)
  1. FLONASE ALLERGY RELIEF [Suspect]
     Active Substance: FLUTICASONE PROPIONATE
     Indication: HYPERSENSITIVITY
     Dosage: UNK UNK, BID
     Dates: start: 20210902, end: 20210903

REACTIONS (3)
  - Burning sensation [Recovered/Resolved]
  - Product complaint [Unknown]
  - Off label use [Unknown]
